FAERS Safety Report 14537030 (Version 1)
Quarter: 2018Q1

REPORT INFORMATION
  Report Type: Spontaneous
  Country: NL (occurrence: NL)
  Receive Date: 20180215
  Receipt Date: 20180215
  Transmission Date: 20180509
  Serious: Yes (Other)
  Sender: FDA-Public Use
  Company Number: NL-JNJFOC-20180216435

PATIENT
  Age: 6 Year
  Sex: Male
  Weight: 25 kg

DRUGS (5)
  1. METHYLPHENIDATE HYDROCHLORIDE. [Suspect]
     Active Substance: METHYLPHENIDATE HYDROCHLORIDE
     Indication: AUTISM SPECTRUM DISORDER
     Route: 065
     Dates: start: 20180112, end: 20180114
  2. METHYLPHENIDATE HYDROCHLORIDE. [Suspect]
     Active Substance: METHYLPHENIDATE HYDROCHLORIDE
     Indication: AUTISM SPECTRUM DISORDER
     Route: 065
     Dates: start: 20180103, end: 20180112
  3. CLONIDINE. [Concomitant]
     Active Substance: CLONIDINE
     Route: 065
  4. METHYLPHENIDATE HYDROCHLORIDE. [Suspect]
     Active Substance: METHYLPHENIDATE HYDROCHLORIDE
     Indication: ATTENTION DEFICIT/HYPERACTIVITY DISORDER
     Route: 065
     Dates: start: 20180103, end: 20180112
  5. METHYLPHENIDATE HYDROCHLORIDE. [Suspect]
     Active Substance: METHYLPHENIDATE HYDROCHLORIDE
     Indication: ATTENTION DEFICIT/HYPERACTIVITY DISORDER
     Route: 065
     Dates: start: 20180112, end: 20180114

REACTIONS (8)
  - Pruritus [Recovered/Resolved]
  - Urticaria [Recovered/Resolved]
  - Skin burning sensation [Recovered/Resolved]
  - Product use in unapproved indication [Unknown]
  - Fatigue [Recovered/Resolved]
  - Off label use [Unknown]
  - Depressed level of consciousness [Recovered/Resolved]
  - Erythema [Recovered/Resolved]

NARRATIVE: CASE EVENT DATE: 20180112
